FAERS Safety Report 8379973-0 (Version None)
Quarter: 2012Q2

REPORT INFORMATION
  Report Type: 
  Country: None (occurrence: None)
  Receive Date: 20120523
  Receipt Date: 20120509
  Transmission Date: 20120825
  Serious: Yes (Hospitalization, Other)
  Sender: FDA-Public Use
  Company Number: FR-ELI_LILLY_AND_COMPANY-FR201205003045

PATIENT
  Sex: Male

DRUGS (5)
  1. IMOVANE [Concomitant]
     Dosage: 30 MG, QD
     Route: 048
     Dates: start: 20111130
  2. CLONAZEPAM [Concomitant]
     Dosage: 30 DF, QD
     Route: 048
     Dates: start: 20111017
  3. MORPHINE SULFATE [Concomitant]
     Dosage: 30 MG, QD
     Route: 048
  4. DURAGESIC-100 [Concomitant]
     Dosage: UNK
     Dates: start: 20110620
  5. CYMBALTA [Suspect]
     Dosage: 60 MG, QD
     Route: 048
     Dates: start: 20110620, end: 20120130

REACTIONS (2)
  - HEPATOCELLULAR INJURY [None]
  - RHABDOMYOLYSIS [None]
